FAERS Safety Report 7116350-4 (Version None)
Quarter: 2010Q4

REPORT INFORMATION
  Report Type: 
  Country: None (occurrence: None)
  Receive Date: 20101122
  Receipt Date: 20101116
  Transmission Date: 20110411
  Serious: Yes (Hospitalization)
  Sender: FDA-Public Use
  Company Number: A0893579A

PATIENT
  Sex: Male
  Weight: 54 kg

DRUGS (3)
  1. AVANDAMET [Suspect]
     Dosage: 2TAB TWICE PER DAY
     Route: 065
     Dates: start: 20070101, end: 20101114
  2. AMARYL [Concomitant]
  3. DILACORON [Concomitant]

REACTIONS (4)
  - ANXIETY [None]
  - BRUXISM [None]
  - DIZZINESS [None]
  - TREMOR [None]
